FAERS Safety Report 21492586 (Version 1)
Quarter: 2022Q4

REPORT INFORMATION
  Report Type: Spontaneous
  Country: DE (occurrence: DE)
  Receive Date: 20221021
  Receipt Date: 20221021
  Transmission Date: 20230113
  Serious: Yes (Other)
  Sender: FDA-Public Use
  Company Number: DE-NOVARTISPH-NVSC2022DE235518

PATIENT
  Sex: Female

DRUGS (3)
  1. TOBRADEX [Suspect]
     Active Substance: DEXAMETHASONE\TOBRAMYCIN
     Indication: Ocular rosacea
     Dosage: 1 DRP, PRN (BOTH EYES)
     Route: 047
  2. TOBRADEX [Suspect]
     Active Substance: DEXAMETHASONE\TOBRAMYCIN
     Dosage: 1 DRP, QD (1-0-0)
     Route: 047
  3. TOBRADEX [Suspect]
     Active Substance: DEXAMETHASONE\TOBRAMYCIN
     Dosage: UNK UNK, Q2W (EVERY 2 WEEKS)
     Route: 065

REACTIONS (7)
  - Cataract [Unknown]
  - Lenticular opacities [Unknown]
  - Injury corneal [Unknown]
  - Product dose omission issue [Unknown]
  - Product supply issue [Unknown]
  - Erythema of eyelid [Unknown]
  - Off label use [Recovered/Resolved]
